FAERS Safety Report 19027324 (Version 1)
Quarter: 2021Q1

REPORT INFORMATION
  Report Type: Spontaneous
  Country: BR (occurrence: BR)
  Receive Date: 20210318
  Receipt Date: 20210318
  Transmission Date: 20210420
  Serious: Yes (Other)
  Sender: FDA-Public Use
  Company Number: BR-PFIZER INC-2021263688

PATIENT
  Age: 91 Year
  Sex: Female

DRUGS (3)
  1. NORVASC [Suspect]
     Active Substance: AMLODIPINE BESYLATE
     Dosage: UNK
     Dates: start: 2016
  2. DONILA [Concomitant]
     Active Substance: DONEPEZIL HYDROCHLORIDE
  3. DESIREE [Concomitant]

REACTIONS (1)
  - Dementia Alzheimer^s type [Unknown]
